FAERS Safety Report 9098242 (Version 3)
Quarter: 2013Q1

REPORT INFORMATION
  Report Type: Spontaneous
  Country: LV (occurrence: LV)
  Receive Date: 20130213
  Receipt Date: 20130226
  Transmission Date: 20140127
  Serious: Yes (Other)
  Sender: FDA-Public Use
  Company Number: PHHY2013LV012725

PATIENT
  Age: 58 Year
  Sex: Female
  Weight: 80 kg

DRUGS (2)
  1. ACLASTA [Suspect]
     Indication: OSTEOPOROSIS
     Dosage: 5 MG, YEARLY
     Route: 042
     Dates: start: 20130111
  2. BONVIVA [Concomitant]
     Indication: OSTEOPOROSIS
     Dosage: 3 MG (3MG/3ML), UNK
     Route: 042
     Dates: start: 201211

REACTIONS (3)
  - Venous thrombosis limb [Recovered/Resolved]
  - Injection site pain [Recovered/Resolved]
  - Injection site erythema [Recovered/Resolved]
